FAERS Safety Report 23508845 (Version 1)
Quarter: 2024Q1

REPORT INFORMATION
  Report Type: Spontaneous
  Country: US (occurrence: None)
  Receive Date: 20240209
  Receipt Date: 20240209
  Transmission Date: 20240410
  Serious: No
  Sender: FDA-Public Use
  Company Number: 2024A032231

PATIENT
  Sex: Female

DRUGS (2)
  1. TAGRISSO [Suspect]
     Active Substance: OSIMERTINIB
     Route: 048
     Dates: start: 202308, end: 202309
  2. TAGRISSO [Suspect]
     Active Substance: OSIMERTINIB
     Route: 048
     Dates: start: 202401

REACTIONS (10)
  - Fatigue [Unknown]
  - Oral pain [Unknown]
  - Nausea [Unknown]
  - Lymphadenopathy [Unknown]
  - Vertigo [Unknown]
  - Facial pain [Unknown]
  - Growth of eyelashes [Unknown]
  - Diarrhoea [Unknown]
  - Dry skin [Unknown]
  - Rash [Unknown]
